FAERS Safety Report 9193090 (Version 3)
Quarter: 2014Q1

REPORT INFORMATION
  Report Type: Spontaneous
  Country: US (occurrence: None)
  Receive Date: 20120703
  Receipt Date: 20130724
  Transmission Date: 20141002
  Serious: No
  Sender: FDA-Public Use
  Company Number: PHEH2012US006106

PATIENT
  Age: 49 Year
  Sex: Female
  Weight: 68 kg

DRUGS (14)
  1. GILENYA [Suspect]
     Indication: RELAPSING-REMITTING MULTIPLE SCLEROSIS
     Route: 048
     Dates: start: 20120315, end: 20130308
  2. PRAMIPEXOLE [Concomitant]
  3. ZOLOFT (SERTRALINE HYDROCHLORIDE) [Concomitant]
  4. PREVACID (LANSOPRAZOLE) [Concomitant]
  5. POTASSIUM [Concomitant]
  6. ADDERALL (AMFETAMINE ASPARTATE, AMFETAMINE SULFATE, DEXAMFETAMINE SACCHARATE, DEXAMFETAMINE SULFATE) [Concomitant]
  7. BENADRYL (AMMONIUM CHLORIDE, DIPHENHYDRAMINE HYDROCHLORIDE, MENTHOL, SODIUM CITRATE) [Concomitant]
  8. TRAMADOL HCL (TRAMADOL HYDROCHLORIDE) [Concomitant]
  9. XANAX (ALPRAZOLAM) [Concomitant]
  10. HYDROCHLOROTHIAZIDE [Concomitant]
  11. AMLODIPINE [Concomitant]
  12. LAMOTRIGINE [Concomitant]
  13. GINSENG (GINSENG NOS) [Concomitant]
  14. SIMVASTATIN [Concomitant]

REACTIONS (3)
  - Pain [None]
  - Nausea [None]
  - Pruritus generalised [None]
